FAERS Safety Report 10955631 (Version 2)
Quarter: 2015Q2

REPORT INFORMATION
  Report Type: Spontaneous
  Country: JP (occurrence: JP)
  Receive Date: 20150326
  Receipt Date: 20150414
  Transmission Date: 20150821
  Serious: Yes (Other)
  Sender: FDA-Public Use
  Company Number: JP-SA-2015SA035906

PATIENT
  Age: 56 Year
  Sex: Female

DRUGS (1)
  1. BCG FOR IMMUNOTHERAPY [Suspect]
     Active Substance: BACILLUS CALMETTE-GUERIN ANTIGEN, UNSPECIFIED SUBSTRAIN
     Indication: BLADDER CANCER
     Route: 043

REACTIONS (4)
  - Reiter^s syndrome [Recovering/Resolving]
  - Walking disability [Recovering/Resolving]
  - Conjunctivitis [Recovering/Resolving]
  - Arthralgia [Recovering/Resolving]
